FAERS Safety Report 9999666 (Version 1)
Quarter: 2014Q1

REPORT INFORMATION
  Report Type: Spontaneous
  Country: US (occurrence: US)
  Receive Date: 20140312
  Receipt Date: 20140312
  Transmission Date: 20141002
  Serious: Yes (Death, Hospitalization)
  Sender: FDA-Public Use
  Company Number: US-SHIRE-US201400378

PATIENT
  Sex: 0

DRUGS (1)
  1. LIALDA [Suspect]
     Indication: CROHN^S DISEASE
     Dosage: 4.8 G, 1X/DAY:QD
     Route: 048
     Dates: start: 201302

REACTIONS (4)
  - General physical health deterioration [Fatal]
  - Hypersensitivity [Unknown]
  - Influenza like illness [Unknown]
  - Off label use [Unknown]
